FAERS Safety Report 9414770 (Version 2)
Quarter: 2013Q3

REPORT INFORMATION
  Report Type: Spontaneous
  Country: US (occurrence: None)
  Receive Date: 20130718
  Receipt Date: 20130729
  Transmission Date: 20140515
  Serious: Yes (Hospitalization)
  Sender: FDA-Public Use
  Company Number: 2013SGN00407

PATIENT
  Age: 32 Year
  Sex: Male
  Weight: 63 kg

DRUGS (4)
  1. BRENTUXIMAB VEDOTIN [Suspect]
     Indication: HODGKIN^S DISEASE
     Dosage: 1.2 MG/KG, QCYCLE, INTRAVENOUS
     Route: 042
     Dates: start: 20130308, end: 20130531
  2. DOXORUBICIN HYDROCHLORIDE [Suspect]
     Indication: HODGKIN^S DISEASE
     Dosage: 25 MG/M2, QCYCLE, INTRAVENOUS
     Route: 042
     Dates: start: 20130308, end: 20130531
  3. VINBLASTINE [Suspect]
     Indication: HODGKIN^S DISEASE
     Dosage: 6 MG/M2, QCYCLE, INTRAVENOUS
     Route: 042
     Dates: start: 20130308, end: 20130531
  4. DACARBAZINE [Suspect]
     Indication: HODGKIN^S DISEASE
     Dosage: 375 MG/M2, QCYCLE, INTRAVENOUS
     Route: 042
     Dates: start: 20130308, end: 20130531

REACTIONS (3)
  - Lung infection [None]
  - Chest pain [None]
  - Pneumonia [None]
